FAERS Safety Report 4838045-X (Version None)
Quarter: 2005Q4

REPORT INFORMATION
  Report Type: 
  Country: None (occurrence: None)
  Receive Date: 20051128
  Receipt Date: 20051013
  Transmission Date: 20060501
  Serious: Yes (Life-Threatening)
  Sender: FDA-Public Use
  Company Number: 200512960JP

PATIENT
  Age: 74 Year
  Sex: Male

DRUGS (4)
  1. RILUTEK [Suspect]
     Indication: AMYOTROPHIC LATERAL SCLEROSIS
     Dates: start: 20050201
  2. BASEN [Concomitant]
     Route: 048
  3. TAKEPRON [Concomitant]
     Dosage: DOSE: 1 TABLET
     Route: 048
  4. ALOSENN [Concomitant]
     Dosage: DOSE: 2 P
     Route: 048

REACTIONS (2)
  - EOSINOPHILIC PNEUMONIA [None]
  - INTERSTITIAL LUNG DISEASE [None]
